FAERS Safety Report 6436989-9 (Version None)
Quarter: 2009Q4

REPORT INFORMATION
  Report Type: 
  Country: None (occurrence: None)
  Receive Date: 20091112
  Receipt Date: 20091103
  Transmission Date: 20100525
  Serious: Yes (Other)
  Sender: FDA-Public Use
  Company Number: US-BIOGENIDEC-2009BI035539

PATIENT
  Age: 49 Year
  Sex: Male
  Weight: 77 kg

DRUGS (4)
  1. AVONEX [Suspect]
     Indication: MULTIPLE SCLEROSIS
     Route: 030
     Dates: start: 19980701, end: 20010101
  2. AVONEX [Suspect]
     Route: 030
     Dates: start: 20010101, end: 20030101
  3. AVONEX [Suspect]
     Route: 030
     Dates: start: 20030101, end: 20091001
  4. TIZANIDINE HCL [Concomitant]
     Indication: MULTIPLE SCLEROSIS

REACTIONS (5)
  - DRUG EFFECT DECREASED [None]
  - HEADACHE [None]
  - HYPOAESTHESIA [None]
  - NON-HODGKIN'S LYMPHOMA [None]
  - PAIN IN EXTREMITY [None]
